FAERS Safety Report 5734816-6 (Version None)
Quarter: 2008Q2

REPORT INFORMATION
  Report Type: 
  Country: None (occurrence: None)
  Receive Date: 20080512
  Receipt Date: 20080505
  Transmission Date: 20081010
  Serious: Yes (Other)
  Sender: FDA-Public Use
  Company Number: CA-JNJFOC-20080501175

PATIENT
  Sex: Female
  Weight: 53.6 kg

DRUGS (2)
  1. REMICADE [Suspect]
     Dosage: LOADING DOSE, WEEK 2
     Route: 042
  2. REMICADE [Suspect]
     Indication: CROHN'S DISEASE
     Dosage: LOADING DOSE, WEEK 0
     Route: 042

REACTIONS (4)
  - CHEST PAIN [None]
  - PHARYNGEAL DISORDER [None]
  - PHARYNGOLARYNGEAL PAIN [None]
  - PYREXIA [None]
